FAERS Safety Report 15540694 (Version 2)
Quarter: 2018Q4

REPORT INFORMATION
  Report Type: Spontaneous
  Country: JP (occurrence: JP)
  Receive Date: 20181023
  Receipt Date: 20181107
  Transmission Date: 20190205
  Serious: Yes (Death, Other)
  Sender: FDA-Public Use
  Company Number: JP-ELI_LILLY_AND_COMPANY-JP201810009760

PATIENT
  Age: 60 Year

DRUGS (2)
  1. CYRAMZA [Suspect]
     Active Substance: RAMUCIRUMAB
     Indication: GASTRIC CANCER
     Dosage: 8 MG/KG, OTHER
     Route: 041
     Dates: start: 20180529
  2. ABRAXANE [Concomitant]
     Active Substance: PACLITAXEL
     Indication: GASTRIC CANCER
     Dosage: 80 MG/M2, OTHER
     Route: 041
     Dates: start: 20180529

REACTIONS (2)
  - Cardiac failure [Fatal]
  - Malignant neoplasm progression [Unknown]
